FAERS Safety Report 9153897 (Version 1)
Quarter: 2013Q1

REPORT INFORMATION
  Report Type: Spontaneous
  Country: US (occurrence: None)
  Receive Date: 20130308
  Receipt Date: 20130308
  Transmission Date: 20140127
  Serious: Yes (Other)
  Sender: FDA-Public Use
  Company Number: None

PATIENT
  Age: 38 Year
  Sex: Male
  Weight: 58.97 kg

DRUGS (1)
  1. DEVROM [Suspect]
     Indication: FLATULENCE
     Dosage: 3 A DAY, 3 A DAY FREQUENCY, PO
     Route: 048
     Dates: start: 20130228, end: 20130304

REACTIONS (1)
  - Constipation [None]
